FAERS Safety Report 5331329-0 (Version None)
Quarter: 2007Q2

REPORT INFORMATION
  Report Type: 
  Country: None (occurrence: None)
  Receive Date: 20070301
  Receipt Date: 20060627
  Transmission Date: 20071010
  Serious: Yes (Other)
  Sender: FDA-Public Use
  Company Number: 2767

PATIENT
  Age: 17 Year
  Sex: Female

DRUGS (1)
  1. AMNESTEEM [Suspect]
     Indication: ACNE CYSTIC
     Dosage: 20 MG, BID, PO
     Route: 048
     Dates: start: 20061111

REACTIONS (3)
  - CRYING [None]
  - DEPRESSION [None]
  - MOOD SWINGS [None]
